FAERS Safety Report 9870580 (Version 1)
Quarter: 2014Q1

REPORT INFORMATION
  Report Type: Spontaneous
  Country: DK (occurrence: DK)
  Receive Date: 20140205
  Receipt Date: 20140205
  Transmission Date: 20141002
  Serious: Yes (Death, Hospitalization)
  Sender: FDA-Public Use
  Company Number: PHHY2014DK010147

PATIENT
  Sex: 0

DRUGS (2)
  1. OLANZAPINE [Suspect]
     Dosage: 40 MG, UNK
  2. RISPERIDONE [Concomitant]
     Dosage: 6 MG, UNK

REACTIONS (5)
  - Cerebellar haemorrhage [Fatal]
  - Sepsis [Fatal]
  - Neuroleptic malignant syndrome [Unknown]
  - Dysphagia [Unknown]
  - Consciousness fluctuating [Unknown]
